FAERS Safety Report 26025977 (Version 1)
Quarter: 2025Q4

REPORT INFORMATION
  Report Type: Spontaneous
  Country: CA (occurrence: CA)
  Receive Date: 20251111
  Receipt Date: 20251111
  Transmission Date: 20260117
  Serious: Yes (Hospitalization, Other)
  Sender: BRISTOL-MYERS SQUIBB COMPANY
  Company Number: CA-BRISTOL-MYERS SQUIBB COMPANY-2025-152370

PATIENT
  Age: 71 Year
  Sex: Male
  Weight: 131 kg

DRUGS (13)
  1. APIXABAN [Suspect]
     Active Substance: APIXABAN
     Indication: Embolism venous
     Route: 048
  2. ALDACTONE [Concomitant]
     Active Substance: SPIRONOLACTONE
     Indication: Product used for unknown indication
  3. ASPIRIN [Concomitant]
     Active Substance: ASPIRIN
     Indication: Aortic aneurysm
     Route: 048
  4. BISOPROLOL [Concomitant]
     Active Substance: BISOPROLOL
     Indication: Product used for unknown indication
  5. CLOTRIMADERM CREAM 1% [Concomitant]
     Indication: Product used for unknown indication
  6. CRESTOR - 20MG [Concomitant]
     Indication: Product used for unknown indication
  7. EFFEXOR XR [Concomitant]
     Active Substance: VENLAFAXINE HYDROCHLORIDE
     Indication: Product used for unknown indication
     Dosage: XR (EXTENDED RELEASE)
  8. ENTRESTO [Concomitant]
     Active Substance: SACUBITRIL\VALSARTAN
     Indication: Product used for unknown indication
  9. DAPAGLIFLOZIN [Concomitant]
     Active Substance: DAPAGLIFLOZIN
     Indication: Product used for unknown indication
  10. FUCIDIN OINTMENT 2% [Concomitant]
     Indication: Product used for unknown indication
     Dosage: DOSAGE FORM: OINTMENT TOPICAL
  11. FUROSEMIDE [Concomitant]
     Active Substance: FUROSEMIDE
     Indication: Product used for unknown indication
  12. SYMBICORT [Concomitant]
     Active Substance: BUDESONIDE\FORMOTEROL FUMARATE DIHYDRATE
     Indication: Product used for unknown indication
     Dosage: 200
  13. TRESIBA FLEXTOUCH (PREFILLED PEN) [Concomitant]
     Indication: Product used for unknown indication
     Dosage: (PREFILLED PEN)?DOSAGE FORM: SOLUTION SUBCUTANEOUS

REACTIONS (1)
  - Duodenal ulcer [Recovered/Resolved]
